FAERS Safety Report 8373758-7 (Version None)
Quarter: 2012Q2

REPORT INFORMATION
  Report Type: 
  Country: None (occurrence: None)
  Receive Date: 20120521
  Receipt Date: 20120514
  Transmission Date: 20120825
  Serious: Yes (Hospitalization)
  Sender: FDA-Public Use
  Company Number: FR-ROCHE-1069223

PATIENT
  Sex: Female

DRUGS (5)
  1. MABTHERA [Suspect]
     Indication: INTERSTITIAL LUNG DISEASE
  2. AZATHIOPRINE [Concomitant]
     Indication: LUNG DISORDER
     Dates: start: 20060101
  3. PREDNISONE TAB [Concomitant]
     Indication: LUNG DISORDER
     Dates: start: 20040101
  4. MABTHERA [Suspect]
     Indication: ANTISYNTHETASE SYNDROME
     Route: 042
     Dates: start: 20120313, end: 20120328
  5. PREDNISONE TAB [Concomitant]
     Dates: start: 20060101

REACTIONS (1)
  - LUNG DISORDER [None]
